FAERS Safety Report 10303362 (Version 1)
Quarter: 2014Q3

REPORT INFORMATION
  Report Type: Spontaneous
  Country: US (occurrence: None)
  Receive Date: 20140710
  Receipt Date: 20140710
  Transmission Date: 20150326
  Serious: Yes (Other)
  Sender: FDA-Public Use
  Company Number: ID NR. 2786_SP

PATIENT
  Age: 71 Year
  Sex: Female
  Weight: 80.4 kg

DRUGS (3)
  1. NORMAL SALINE [Concomitant]
     Active Substance: SODIUM CHLORIDE
  2. LEVOFLOXACIN INJECTION IN 5% DEXTROSE [Suspect]
     Active Substance: LEVOFLOXACIN
     Indication: PNEUMONIA
     Route: 042
     Dates: start: 20140630, end: 20140630
  3. LEVOFLOXACIN INJECTION IN 5% DEXTROSE [Suspect]
     Active Substance: LEVOFLOXACIN
     Indication: URINARY TRACT INFECTION
     Route: 042
     Dates: start: 20140630, end: 20140630

REACTIONS (3)
  - Infusion site extravasation [None]
  - Infusion site vesicles [None]
  - Infusion site swelling [None]

NARRATIVE: CASE EVENT DATE: 20140701
